FAERS Safety Report 13400972 (Version 2)
Quarter: 2017Q2

REPORT INFORMATION
  Report Type: Spontaneous
  Country: JP (occurrence: JP)
  Receive Date: 20170404
  Receipt Date: 20170410
  Transmission Date: 20170830
  Serious: Yes (Hospitalization)
  Sender: FDA-Public Use
  Company Number: JP-GLAXOSMITHKLINE-JP2017JPN044245

PATIENT
  Sex: Male

DRUGS (2)
  1. TENOZET [Suspect]
     Active Substance: TENOFOVIR DISOPROXIL FUMARATE
     Dosage: UNK
     Route: 048
  2. ZEFIX [Suspect]
     Active Substance: LAMIVUDINE
     Dosage: UNK
     Route: 048

REACTIONS (1)
  - Adverse event [Recovering/Resolving]
